FAERS Safety Report 16972570 (Version 1)
Quarter: 2019Q4

REPORT INFORMATION
  Report Type: Spontaneous
  Country: CA (occurrence: CA)
  Receive Date: 20191030
  Receipt Date: 20191030
  Transmission Date: 20200122
  Serious: Yes (Other)
  Sender: FDA-Public Use
  Company Number: CA-AUROBINDO-AUR-APL-2019-069026

PATIENT
  Age: 64 Year
  Sex: Male

DRUGS (1)
  1. VALSARTAN. [Suspect]
     Active Substance: VALSARTAN
     Indication: PRODUCT USED FOR UNKNOWN INDICATION
     Dosage: UNK
     Route: 065

REACTIONS (7)
  - Bile duct stenosis [Unknown]
  - Hepatic cancer [Unknown]
  - Liver transplant [Unknown]
  - Product impurity [Unknown]
  - Product quality issue [Unknown]
  - Bile duct stent insertion [Unknown]
  - Prostate cancer [Unknown]
